FAERS Safety Report 25200956 (Version 1)
Quarter: 2025Q2

REPORT INFORMATION
  Report Type: Spontaneous
  Country: ZA (occurrence: ZA)
  Receive Date: 20250415
  Receipt Date: 20250415
  Transmission Date: 20250716
  Serious: Yes (Death, Other)
  Sender: CSL BEHRING
  Company Number: ZA-ROCHE-10000249929

PATIENT
  Age: 41 Year
  Sex: Male

DRUGS (1)
  1. MIRCERA [Suspect]
     Active Substance: METHOXY POLYETHYLENE GLYCOL-EPOETIN BETA
     Indication: Product used for unknown indication
     Route: 065

REACTIONS (12)
  - Death [Fatal]
  - Peritonitis [Unknown]
  - Illness [Unknown]
  - C-reactive protein increased [Unknown]
  - Red blood cell count decreased [Unknown]
  - Haemoglobin decreased [Unknown]
  - Haematocrit decreased [Unknown]
  - Reticulocyte count decreased [Unknown]
  - Blood albumin decreased [Unknown]
  - Blood calcium decreased [Unknown]
  - Blood phosphorus increased [Unknown]
  - Serum ferritin increased [Unknown]

NARRATIVE: CASE EVENT DATE: 20241008
